FAERS Safety Report 17839760 (Version 1)
Quarter: 2020Q2

REPORT INFORMATION
  Report Type: Spontaneous
  Country: US (occurrence: US)
  Receive Date: 20200529
  Receipt Date: 20200529
  Transmission Date: 20200714
  Serious: Yes (Hospitalization)
  Sender: FDA-Public Use
  Company Number: US-MYLANLABS-2020M1052065

PATIENT
  Age: 66 Year
  Sex: Female

DRUGS (3)
  1. BUPROPION. [Suspect]
     Active Substance: BUPROPION
     Indication: SMOKING CESSATION THERAPY
     Dosage: 150 MILLIGRAM, QD
     Route: 065
  2. ALPRAZOLAM. [Suspect]
     Active Substance: ALPRAZOLAM
     Indication: ANXIETY
     Dosage: 1 MILLIGRAM, TID
     Route: 065
  3. LEVOTHYROXINE. [Concomitant]
     Active Substance: LEVOTHYROXINE
     Indication: HYPOTHYROIDISM
     Dosage: 137-150 MG ALTERNATING DAILY
     Route: 065

REACTIONS (8)
  - Mental status changes [Unknown]
  - Restlessness [Recovering/Resolving]
  - Agitation [Recovering/Resolving]
  - Confusional state [Recovering/Resolving]
  - Tachycardia [Unknown]
  - Hypertension [Unknown]
  - Drug withdrawal convulsions [Recovered/Resolved]
  - Seizure [Recovered/Resolved]
